FAERS Safety Report 4339657-2 (Version None)
Quarter: 2004Q1

REPORT INFORMATION
  Report Type: 
  Country: None (occurrence: None)
  Receive Date: 20040329
  Receipt Date: 20031231
  Transmission Date: 20041129
  Serious: No
  Sender: FDA-Public Use
  Company Number: 04P-163-0246277-00

PATIENT
  Age: 66 Year
  Sex: Female
  Weight: 78.4723 kg

DRUGS (8)
  1. HUMIRA [Suspect]
     Indication: RHEUMATOID ARTHRITIS
     Dosage: 40 MG, 1 IN 2 WK, SUBCUTANEOUS
     Route: 058
     Dates: start: 20030901
  2. SOLTOPRIDE [Concomitant]
  3. HYDROCHLOROTHIAZIDE [Concomitant]
  4. IRBESARTAN [Concomitant]
  5. ANAGRELIDE HCL [Concomitant]
  6. LEVOTHYROXINE SODIUM [Concomitant]
  7. PREDNISONE [Concomitant]
  8. ESOMEPRAZOLE [Concomitant]

REACTIONS (1)
  - INJECTION SITE RASH [None]
